FAERS Safety Report 9142386 (Version 2)
Quarter: 2013Q1

REPORT INFORMATION
  Report Type: Spontaneous
  Country: US (occurrence: US)
  Receive Date: 20130306
  Receipt Date: 20130322
  Transmission Date: 20140127
  Serious: Yes (Death)
  Sender: FDA-Public Use
  Company Number: US-BIOGENIDEC-2013BI020192

PATIENT
  Age: 72 Year
  Sex: Male
  Weight: 87 kg

DRUGS (17)
  1. AVONEX [Suspect]
     Indication: MULTIPLE SCLEROSIS
     Route: 030
     Dates: start: 19970201
  2. CARBAMAZEPINE [Concomitant]
     Route: 048
     Dates: start: 20100331
  3. AVONEX [Suspect]
     Indication: MULTIPLE SCLEROSIS
     Route: 030
     Dates: start: 20120716
  4. BACLOFEN [Concomitant]
     Indication: MUSCLE SPASMS
     Route: 048
     Dates: start: 20100111
  5. BUTALBITAL-ASPIRIN-CAFFEINE [Concomitant]
  6. CARVEDILOL [Concomitant]
     Route: 048
     Dates: start: 20081208
  7. DOXYCYCLINE HYCLATE [Concomitant]
     Route: 048
  8. EFFEXOR [Concomitant]
     Route: 048
     Dates: start: 20061207
  9. HYDROCHLOROTHIAZIDE [Concomitant]
     Dates: start: 20061207
  10. NORVASC [Concomitant]
     Route: 048
     Dates: start: 20081208
  11. OS-CAL 500 + D [Concomitant]
     Dates: start: 20061207
  12. PAXIL CR [Concomitant]
     Route: 048
     Dates: start: 20061207
  13. PEG [Concomitant]
     Dates: start: 20061207
  14. PROVIGIL [Concomitant]
     Indication: FATIGUE
     Dates: start: 20091002
  15. REQUIP [Concomitant]
     Route: 048
     Dates: start: 20081208
  16. VITAMIN B12 [Concomitant]
     Dates: start: 20061207
  17. NEOSPORIN [Concomitant]
     Indication: POST THROMBOTIC SYNDROME

REACTIONS (2)
  - Pneumonia [Fatal]
  - Renal failure [Fatal]
